FAERS Safety Report 7997068-2 (Version None)
Quarter: 2011Q4

REPORT INFORMATION
  Report Type: 
  Country: None (occurrence: None)
  Receive Date: 20111221
  Receipt Date: 20111214
  Transmission Date: 20120403
  Serious: No
  Sender: FDA-Public Use
  Company Number: US-B.I. PHARMACEUTICALS,INC./RIDGEFIELD-2011-BP-05663BP

PATIENT
  Sex: Male

DRUGS (13)
  1. FUROSEMIDE [Concomitant]
     Indication: CARDIAC FAILURE
  2. LEVOTHYROXINE SODIUM [Concomitant]
     Indication: HYPOTHYROIDISM
     Dosage: 50 MCG
     Route: 048
     Dates: start: 20090101
  3. POTASSIUM [Concomitant]
     Indication: SUPPLEMENTATION THERAPY
     Dosage: 20 MEQ
     Route: 048
     Dates: start: 20080101
  4. FUROSEMIDE [Concomitant]
     Indication: FLUID RETENTION
     Dosage: 40 MG
     Route: 048
     Dates: start: 20080101
  5. CARVEDILOL [Concomitant]
     Indication: CARDIAC FAILURE
  6. CARVEDILOL [Concomitant]
     Indication: CARDIAC DISORDER
     Dosage: 12.5 MG
     Route: 048
     Dates: start: 20080101
  7. AMBIEN [Concomitant]
     Indication: SLEEP DISORDER
     Dosage: 5 MG
     Route: 048
     Dates: start: 20090101
  8. CPAP MACHINE [Concomitant]
     Indication: SLEEP APNOEA SYNDROME
  9. PRADAXA [Suspect]
     Indication: ATRIAL FIBRILLATION
     Dosage: 300 MG
     Route: 048
     Dates: start: 20100101
  10. OMEPRAZOLE [Concomitant]
     Indication: NERVOUSNESS
  11. ZANTAC [Concomitant]
     Indication: NERVOUSNESS
  12. AMBIEN [Concomitant]
     Indication: INSOMNIA
  13. VITAMIN TAB [Concomitant]
     Indication: PROPHYLAXIS

REACTIONS (3)
  - SENSATION OF FOREIGN BODY [None]
  - PARAESTHESIA [None]
  - MELAENA [None]
